FAERS Safety Report 10364355 (Version 1)
Quarter: 2014Q3

REPORT INFORMATION
  Report Type: Spontaneous
  Country: US (occurrence: None)
  Receive Date: 20140804
  Receipt Date: 20140804
  Transmission Date: 20150326
  Serious: Yes (Other)
  Sender: FDA-Public Use
  Company Number: None

PATIENT
  Sex: Female

DRUGS (2)
  1. AMPHETAMINE EXTENDED RELEASE [Suspect]
     Active Substance: AMPHETAMINE SULFATE
     Dosage: 10 MG EXT REL?THREE TIMES DAILY?ORAL
     Route: 048
     Dates: start: 201403, end: 201406
  2. AMPHETAMINE EXTENDED RELEASE [Suspect]
     Active Substance: AMPHETAMINE SULFATE
     Route: 048
     Dates: start: 201406

REACTIONS (1)
  - Treatment failure [None]
